FAERS Safety Report 13427792 (Version 1)
Quarter: 2017Q2

REPORT INFORMATION
  Report Type: Spontaneous
  Country: ES (occurrence: ES)
  Receive Date: 20170411
  Receipt Date: 20170411
  Transmission Date: 20170830
  Serious: Yes (Hospitalization, Other)
  Sender: FDA-Public Use
  Company Number: ES-MYLANLABS-2017M1021823

PATIENT

DRUGS (2)
  1. PAMIDRONATE [Suspect]
     Active Substance: PAMIDRONATE DISODIUM
     Indication: CALCIPHYLAXIS
     Dosage: 30MG EVERY TEN DAYS
     Route: 042
     Dates: start: 201209
  2. IBANDRONATE [Suspect]
     Active Substance: IBANDRONATE SODIUM
     Indication: CALCIPHYLAXIS
     Dosage: 18 DOSES
     Route: 042
     Dates: start: 201211

REACTIONS (5)
  - Ulcer [Unknown]
  - Septic shock [Unknown]
  - Enterobacter infection [Unknown]
  - Skin plaque [Unknown]
  - Klebsiella infection [Unknown]

NARRATIVE: CASE EVENT DATE: 201212
